FAERS Safety Report 9079247 (Version 1)
Quarter: 2013Q1

REPORT INFORMATION
  Report Type: Spontaneous
  Country: US (occurrence: US)
  Receive Date: 20130130
  Receipt Date: 20130130
  Transmission Date: 20140127
  Serious: No
  Sender: FDA-Public Use
  Company Number: US-009507513-1301USA013258

PATIENT
  Age: 60 Year
  Sex: Male

DRUGS (1)
  1. VICTRELIS [Suspect]
     Route: 048

REACTIONS (2)
  - Nausea [Unknown]
  - Vomiting [Unknown]
